FAERS Safety Report 10798580 (Version 2)
Quarter: 2015Q2

REPORT INFORMATION
  Report Type: Report from Study
  Country: FR (occurrence: FR)
  Receive Date: 20150216
  Receipt Date: 20150413
  Transmission Date: 20150821
  Serious: Yes (Death, Hospitalization)
  Sender: FDA-Public Use
  Company Number: FR-GLAXOSMITHKLINE-FR2014GSK014196

PATIENT
  Age: 70 Year
  Sex: Female
  Weight: 32 kg

DRUGS (5)
  1. SOLUPRED [Concomitant]
     Active Substance: PREDNISOLONE
  2. PAZOPANIB [Suspect]
     Active Substance: PAZOPANIB
     Indication: SALIVARY GLAND CANCER
     Dosage: 800 MG, UNK
     Route: 048
     Dates: start: 20140716, end: 20141027
  3. GAVISCON [Concomitant]
     Active Substance: ALUMINUM HYDROXIDE\MAGNESIUM CARBONATE
  4. TRAMADOL [Concomitant]
     Active Substance: TRAMADOL
  5. LEVOTHYROX [Concomitant]
     Active Substance: LEVOTHYROXINE

REACTIONS (5)
  - Asthenia [Fatal]
  - Weight decreased [Fatal]
  - Decreased appetite [Fatal]
  - Performance status decreased [Fatal]
  - Dyspnoea [Fatal]

NARRATIVE: CASE EVENT DATE: 20141027
